FAERS Safety Report 13120585 (Version 17)
Quarter: 2021Q1

REPORT INFORMATION
  Report Type: Spontaneous
  Country: US (occurrence: US)
  Receive Date: 20170117
  Receipt Date: 20210325
  Transmission Date: 20210419
  Serious: Yes (Hospitalization, Disabling)
  Sender: FDA-Public Use
  Company Number: US-PFIZER INC-2017017925

PATIENT
  Age: 55 Year
  Sex: Female

DRUGS (6)
  1. SKELAXIN [Concomitant]
     Active Substance: METAXALONE
     Dosage: 800 MG, UNK
  2. RELPAX [Suspect]
     Active Substance: ELETRIPTAN HYDROBROMIDE
     Indication: HEADACHE
     Dosage: 40 MG, AS NEEDED (1 AT HEADACHE ONSET, REPEAT IN 2 HOURS IF NEEDED/2 PER 24 HOURS MAXIMUM)
     Route: 048
     Dates: start: 20181210
  3. RELPAX [Suspect]
     Active Substance: ELETRIPTAN HYDROBROMIDE
     Dosage: 40 MG, AS NEEDED (REPEAT IN 2HOURS IF NEEDED/2 PER 24 HOURS MAXIMUM)
     Route: 048
     Dates: start: 20200313
  4. PREMARIN [Concomitant]
     Active Substance: ESTROGENS, CONJUGATED
     Dosage: UNK
  5. RELPAX [Suspect]
     Active Substance: ELETRIPTAN HYDROBROMIDE
     Indication: MIGRAINE
     Dosage: 40 MG, UNK (^6 BY 2^/ QUANTITY FOR 90 DAYS: 72)
  6. RELPAX [Suspect]
     Active Substance: ELETRIPTAN HYDROBROMIDE
     Dosage: 40 MG, AS NEEDED (REPEAT IN 2HOURS IF NEEDED/4 PER 24 HOURS MAXIMUM)
     Route: 048

REACTIONS (12)
  - Concussion [Unknown]
  - Back pain [Unknown]
  - Asthma [Unknown]
  - Nausea [Unknown]
  - Fatigue [Unknown]
  - Migraine [Not Recovered/Not Resolved]
  - Animal scratch [Unknown]
  - Memory impairment [Unknown]
  - Pain [Not Recovered/Not Resolved]
  - Fall [Unknown]
  - Fibromyalgia [Unknown]
  - Malaise [Unknown]
